FAERS Safety Report 24787861 (Version 3)
Quarter: 2025Q1

REPORT INFORMATION
  Report Type: Spontaneous
  Country: US (occurrence: US)
  Receive Date: 20241230
  Receipt Date: 20250206
  Transmission Date: 20250408
  Serious: Yes (Other)
  Sender: AMGEN
  Company Number: US-AMGEN-USASP2024250664

PATIENT
  Sex: Female

DRUGS (2)
  1. REPATHA [Suspect]
     Active Substance: EVOLOCUMAB
     Indication: Blood cholesterol increased
     Dosage: 140 MILLIGRAM, Q2WK
     Route: 058
  2. REPATHA [Suspect]
     Active Substance: EVOLOCUMAB
     Dosage: UNK, Q3WK
     Route: 058

REACTIONS (5)
  - Pituitary tumour benign [Unknown]
  - Cerebral small vessel ischaemic disease [Unknown]
  - Blood triglycerides abnormal [Unknown]
  - Low density lipoprotein decreased [Unknown]
  - Very low density lipoprotein abnormal [Unknown]

NARRATIVE: CASE EVENT DATE: 20250109
